FAERS Safety Report 9401133 (Version 1)
Quarter: 2013Q3

REPORT INFORMATION
  Report Type: Spontaneous
  Country: MX (occurrence: MX)
  Receive Date: 20130715
  Receipt Date: 20130715
  Transmission Date: 20140515
  Serious: Yes (Death)
  Sender: FDA-Public Use
  Company Number: MX-ACTELION-A-CH2013-85756

PATIENT
  Age: 4 Year
  Sex: Female
  Weight: 14.5 kg

DRUGS (3)
  1. TRACLEER [Suspect]
     Indication: PULMONARY ARTERIAL HYPERTENSION
     Dosage: 31.25 MG, BID
     Route: 048
     Dates: start: 20130526, end: 20130709
  2. FUROSEMIDE [Concomitant]
     Dosage: 10 MG, BID
  3. SPIRONOLACTONE [Concomitant]
     Dosage: 12.5 UNK, BID

REACTIONS (4)
  - Pulmonary hypertensive crisis [Fatal]
  - Cardio-respiratory arrest [Fatal]
  - Dyspnoea [Fatal]
  - Cyanosis [Fatal]
